FAERS Safety Report 13160125 (Version 4)
Quarter: 2020Q4

REPORT INFORMATION
  Report Type: Report from Study
  Country: AR (occurrence: AR)
  Receive Date: 20170127
  Receipt Date: 20201219
  Transmission Date: 20210113
  Serious: Yes (Other)
  Sender: FDA-Public Use
  Company Number: PHHY2016AR051471

PATIENT
  Sex: Female

DRUGS (2)
  1. EXJADE [Suspect]
     Active Substance: DEFERASIROX
     Dosage: 125 MG
     Route: 065
     Dates: start: 20180101
  2. EXJADE [Suspect]
     Active Substance: DEFERASIROX
     Indication: HAEMOLYTIC ANAEMIA
     Dosage: 500 MG, QD
     Route: 065
     Dates: start: 20090101

REACTIONS (17)
  - Deafness [Not Recovered/Not Resolved]
  - Alopecia [Unknown]
  - Coeliac disease [Unknown]
  - Diarrhoea [Not Recovered/Not Resolved]
  - Thyroid disorder [Not Recovered/Not Resolved]
  - Liver iron concentration increased [Not Recovered/Not Resolved]
  - Serum ferritin decreased [Not Recovered/Not Resolved]
  - Dizziness [Unknown]
  - Colitis [Not Recovered/Not Resolved]
  - Discomfort [Not Recovered/Not Resolved]
  - Food refusal [Unknown]
  - Thyroid function test abnormal [Not Recovered/Not Resolved]
  - Hepatitis C [Not Recovered/Not Resolved]
  - Nausea [Unknown]
  - Malaise [Not Recovered/Not Resolved]
  - Faeces discoloured [Not Recovered/Not Resolved]
  - Abdominal pain [Not Recovered/Not Resolved]
